FAERS Safety Report 6106992-7 (Version None)
Quarter: 2009Q1

REPORT INFORMATION
  Report Type: 
  Country: None (occurrence: None)
  Receive Date: 20090309
  Receipt Date: 20090303
  Transmission Date: 20090719
  Serious: Yes (Hospitalization, Other)
  Sender: FDA-Public Use
  Company Number: US-ELI_LILLY_AND_COMPANY-US200903001047

PATIENT
  Sex: Female
  Weight: 106.58 kg

DRUGS (18)
  1. BYETTA [Suspect]
     Indication: TYPE 2 DIABETES MELLITUS
     Dosage: 5 UG, 2/D
     Route: 058
     Dates: start: 20080601, end: 20080701
  2. BYETTA [Suspect]
     Dosage: 10 UG, 2/D
     Route: 058
     Dates: start: 20080701, end: 20090201
  3. BYETTA [Suspect]
     Dosage: 10 UG, 2/D
     Route: 058
     Dates: start: 20090201
  4. GLIPIZIDE [Concomitant]
     Indication: TYPE 2 DIABETES MELLITUS
     Dosage: 5 MG, EACH MORNING
     Route: 048
  5. METFORMIN [Concomitant]
     Indication: TYPE 2 DIABETES MELLITUS
     Dosage: 1000 MG, 2/D
     Route: 048
  6. METFORMIN [Concomitant]
     Dosage: 500 MG, DAILY (1/D)
     Route: 048
  7. CYCLOBENZAPRINE [Concomitant]
     Indication: PAIN
     Dosage: 10 MG, 3/D
     Dates: start: 19990101
  8. WARFARIN SODIUM [Concomitant]
     Indication: ANTICOAGULANT THERAPY
     Dosage: UNK, DAILY (1/D)
     Route: 048
     Dates: start: 20070101
  9. QUININE [Concomitant]
     Indication: MUSCLE SPASMS
     Dosage: 324 MG, DAILY (1/D)
  10. SIMVASTATIN [Concomitant]
     Indication: BLOOD CHOLESTEROL
     Dosage: 20 MG, DAILY (1/D)
  11. ALPRAZOLAM [Concomitant]
     Indication: ANXIETY
     Dosage: 0.5 MG, AS NEEDED
  12. POTASSIUM CHLORIDE [Concomitant]
     Dosage: 10 MEQ, 3/D
     Route: 048
  13. TRIAMTERENE AND HYDROCHLOROTHIAZIDE [Concomitant]
     Indication: OEDEMA PERIPHERAL
     Route: 048
  14. LISINOPRIL [Concomitant]
     Indication: BLOOD PRESSURE
     Dates: end: 20090201
  15. FUROSEMIDE [Concomitant]
     Indication: FLUID RETENTION
     Dosage: 2 D/F, UNK
     Dates: start: 20070101
  16. FUROSEMIDE [Concomitant]
     Dosage: 1 D/F, DAILY (1/D)
     Dates: start: 20070101
  17. VENLAFAXINE HCL [Concomitant]
     Indication: DEPRESSION
     Dosage: 150 MG, DAILY (1/D)
     Route: 048
     Dates: start: 20060101
  18. LEVOXYL [Concomitant]
     Indication: HYPOTHYROIDISM
     Dosage: 0.125 MG, EACH MORNING
     Route: 048

REACTIONS (10)
  - BLOOD GLUCOSE INCREASED [None]
  - BLOOD PRESSURE DECREASED [None]
  - HERPES ZOSTER [None]
  - MOUTH HAEMORRHAGE [None]
  - OEDEMA PERIPHERAL [None]
  - PAIN [None]
  - SHOCK [None]
  - UNRESPONSIVE TO STIMULI [None]
  - VISION BLURRED [None]
  - WEIGHT DECREASED [None]
